FAERS Safety Report 18363063 (Version 3)
Quarter: 2020Q4

REPORT INFORMATION
  Report Type: Report from Study
  Country: JP (occurrence: JP)
  Receive Date: 20201008
  Receipt Date: 20201106
  Transmission Date: 20210114
  Serious: Yes (Life-Threatening, Hospitalization)
  Sender: FDA-Public Use
  Company Number: JP-JAZZ-2020-JP-011545

PATIENT
  Age: 64 Year
  Sex: Female
  Weight: 46 kg

DRUGS (28)
  1. MAGMITT [Concomitant]
     Active Substance: MAGNESIUM OXIDE
     Dosage: 330 MILLIGRAM
     Dates: start: 20200709
  2. BESOFTEN [Concomitant]
     Active Substance: PENTOSAN POLYSULFATE SODIUM
     Dosage: UNK
     Dates: start: 20200521
  3. CANCIDAS [Concomitant]
     Active Substance: CASPOFUNGIN ACETATE
     Dosage: UNK
     Dates: start: 20200813
  4. BISONO [Concomitant]
     Active Substance: BISOPROLOL
     Dosage: 4 MILLIGRAM
     Dates: start: 20200926
  5. MIYA-BM [Concomitant]
     Active Substance: CLOSTRIDIUM BUTYRICUM SPORES STRAIN M-55
     Dosage: UNK
     Dates: start: 20200520
  6. HEPARINOID [Concomitant]
     Active Substance: CHONDROITIN SULFATE (BOVINE)
     Dosage: UNK
     Dates: start: 20200526
  7. MEROPENEM. [Concomitant]
     Active Substance: MEROPENEM
     Dosage: 3 GRAM
     Dates: start: 20200919
  8. BFLUID [Concomitant]
     Active Substance: AMINO ACIDS\DEXTROSE\ELECTROLYTES NOS\VITAMINS
     Dosage: UNK
     Dates: start: 20200916
  9. NORADRENALINE [Concomitant]
     Active Substance: NOREPINEPHRINE
     Dosage: UNK
     Dates: start: 20200920
  10. NOVOLIN R [Concomitant]
     Active Substance: INSULIN HUMAN
     Dosage: UNK
     Dates: start: 20200921
  11. PARIET [Concomitant]
     Active Substance: RABEPRAZOLE SODIUM
     Dosage: UNK
     Dates: start: 20200621
  12. VENILON [Concomitant]
     Active Substance: HUMAN IMMUNOGLOBULIN G
     Dosage: 5 GRAM
     Dates: start: 20200918
  13. ACELIO [Concomitant]
     Active Substance: ACETAMINOPHEN
     Dosage: UNK
     Dates: start: 20200919
  14. OMEPRAZOLE. [Concomitant]
     Active Substance: OMEPRAZOLE
     Dosage: 20 MILLIGRAM
     Dates: start: 20200920
  15. XYLOCAINE #1 [Concomitant]
     Active Substance: LIDOCAINE
     Dosage: UNK
     Dates: start: 20200601
  16. ELNEOPA NF NO.2 [Concomitant]
     Dosage: 3 GRAM
     Dates: start: 20200828
  17. RECOMODULIN [Concomitant]
     Active Substance: THROMBOMODULIN ALFA
     Dosage: UNK
     Dates: start: 20200922
  18. SOLU-MEDROL [Concomitant]
     Active Substance: METHYLPREDNISOLONE SODIUM SUCCINATE
     Dosage: 75 MILLIGRAM
     Dates: start: 20200920
  19. KCL CORRECTIVE [Concomitant]
     Dosage: 100 MILLILITER
     Dates: start: 20200923
  20. CPX-351 [Suspect]
     Active Substance: CYTARABINE\DAUNORUBICIN
     Dosage: 65 UNITS/M2
     Route: 042
     Dates: start: 20140812, end: 20200814
  21. AZUNOL GARGLE LIQUID [Concomitant]
     Dosage: UNK
     Dates: start: 20200601
  22. KETOPROFEN. [Concomitant]
     Active Substance: KETOPROFEN
     Dosage: UNK
     Dates: start: 20200606
  23. MEROPENEM. [Concomitant]
     Active Substance: MEROPENEM
     Dosage: 3 GRAM
     Dates: start: 20200826
  24. TAKECAB [Concomitant]
     Active Substance: VONOPRAZAN FUMARATE
     Dosage: UNK
     Dates: start: 20200912
  25. SOLYUGEN [Concomitant]
     Dosage: UNK
     Dates: start: 20200918
  26. CPX-351 [Suspect]
     Active Substance: CYTARABINE\DAUNORUBICIN
     Indication: ACUTE MYELOID LEUKAEMIA
     Dosage: 100 UNITS/M2
     Route: 042
     Dates: start: 20200520
  27. CPX-351 [Suspect]
     Active Substance: CYTARABINE\DAUNORUBICIN
     Dosage: 65 UNITS/M2
     Route: 042
     Dates: start: 20200629
  28. POTASSIUM CHLORIDE. [Concomitant]
     Active Substance: POTASSIUM CHLORIDE
     Dosage: UNK
     Dates: start: 20200806

REACTIONS (5)
  - Pulmonary oedema [Recovered/Resolved]
  - Pancreatitis [Recovered/Resolved]
  - Disseminated intravascular coagulation [Recovered/Resolved]
  - Upper gastrointestinal haemorrhage [Recovered/Resolved]
  - Cardiac tamponade [Recovered/Resolved]

NARRATIVE: CASE EVENT DATE: 20200828
